FAERS Safety Report 4371281-8 (Version None)
Quarter: 2004Q2

REPORT INFORMATION
  Report Type: 
  Country: None (occurrence: None)
  Receive Date: 20040604
  Receipt Date: 20040126
  Transmission Date: 20050107
  Serious: Yes (Hospitalization, Disabling)
  Sender: FDA-Public Use
  Company Number: US-MERCK-0401USA01969

PATIENT
  Age: 33 Year
  Sex: Female
  Weight: 77 kg

DRUGS (8)
  1. [THERAPY UNSPECIFIED] [Suspect]
     Route: 065
     Dates: start: 19990101, end: 20020301
  2. TYLENOL [Concomitant]
     Route: 065
  3. FIORICET TABLETS [Concomitant]
     Indication: MIGRAINE
     Route: 065
     Dates: start: 20020221
  4. YASMIN [Suspect]
     Indication: CONTRACEPTION
     Route: 065
  5. ADVIL [Concomitant]
     Route: 065
  6. SKELAXIN [Concomitant]
     Indication: BACK PAIN
     Route: 065
     Dates: start: 20020130
  7. PAXIL [Concomitant]
     Indication: ANXIETY
     Route: 065
     Dates: start: 19980101, end: 20030101
  8. VIOXX [Suspect]
     Indication: BACK PAIN
     Route: 048
     Dates: start: 20020130, end: 20020225

REACTIONS (3)
  - EMOTIONAL DISTRESS [None]
  - ISCHAEMIC CEREBRAL INFARCTION [None]
  - MIGRAINE [None]
